FAERS Safety Report 4368069-0 (Version None)
Quarter: 2004Q2

REPORT INFORMATION
  Report Type: 
  Country: None (occurrence: None)
  Receive Date: 20040602
  Receipt Date: 20040526
  Transmission Date: 20050107
  Serious: Yes (Death, Other)
  Sender: FDA-Public Use
  Company Number: 200414121US

PATIENT
  Sex: Female

DRUGS (5)
  1. LOVENOX [Suspect]
     Indication: PROPHYLAXIS
     Route: 058
     Dates: start: 20040506, end: 20040517
  2. LOVENOX [Suspect]
     Indication: SURGERY
     Route: 058
     Dates: start: 20040506, end: 20040517
  3. CORTICOSTEROIDS [Concomitant]
     Dosage: DOSE: NOT PROVIDED
  4. LEVAQUIN [Concomitant]
     Dosage: DOSE: NOT PROVIDED
  5. PROTON PUMP INHIBITOR [Concomitant]
     Dosage: DOSE: NOT PROVIDED

REACTIONS (8)
  - DIPLEGIA [None]
  - EXTRADURAL HAEMATOMA [None]
  - HAEMATOCRIT DECREASED [None]
  - HAEMOGLOBIN DECREASED [None]
  - ILEUS [None]
  - INTRA-ABDOMINAL HAEMORRHAGE [None]
  - POST PROCEDURAL COMPLICATION [None]
  - SPINAL CORD COMPRESSION [None]
